FAERS Safety Report 9306794 (Version 2)
Quarter: 2013Q3

REPORT INFORMATION
  Report Type: Report from Study
  Country: US (occurrence: US)
  Receive Date: 20130523
  Receipt Date: 20130729
  Transmission Date: 20140515
  Serious: Yes (Death)
  Sender: FDA-Public Use
  Company Number: US-ALEXION-A201301090

PATIENT
  Age: 35 Year
  Sex: Female
  Weight: 78.5 kg

DRUGS (16)
  1. SOLIRIS [Suspect]
     Indication: HAEMOLYTIC URAEMIC SYNDROME
     Dosage: 900 MG, SINGLE
     Route: 042
     Dates: start: 20130501, end: 20130501
  2. SIROLIMUS [Concomitant]
     Indication: GRAFT VERSUS HOST DISEASE
     Dosage: UNK
     Dates: start: 20130423, end: 20130427
  3. TACROLIMUS [Concomitant]
     Indication: GRAFT VERSUS HOST DISEASE
     Dosage: UNK
     Dates: end: 20130427
  4. ACTIGALL [Concomitant]
     Dosage: UNK
  5. ATIVAN [Concomitant]
     Dosage: UNK
  6. LANTUS [Concomitant]
     Indication: DIABETES MELLITUS
     Dosage: UNK
  7. CEFTRIAXONE [Concomitant]
     Dosage: UNK
  8. DAPTOMYCIN [Concomitant]
     Dosage: UNK
  9. MEROPENEM [Concomitant]
     Indication: URINARY TRACT INFECTION
     Dosage: UNK
  10. NORVASC [Concomitant]
     Dosage: UNK
  11. BUMEX [Concomitant]
     Dosage: UNK
  12. LOPRESSOR [Concomitant]
     Dosage: UNK
  13. FENTANYL [Concomitant]
     Dosage: UNK
     Route: 062
  14. LIDOCAINE [Concomitant]
     Dosage: UNK
  15. MEDROL [Concomitant]
     Indication: GRAFT VERSUS HOST DISEASE IN LIVER
     Dosage: 80 MG, QD
     Dates: start: 20130416
  16. MEDROL [Concomitant]
     Dosage: 140 MG, QD
     Dates: start: 20130426

REACTIONS (5)
  - Acute respiratory distress syndrome [Fatal]
  - Renal failure acute [Fatal]
  - Hepatic failure [Fatal]
  - Shock [Fatal]
  - Infection [Fatal]
